FAERS Safety Report 6673455-X (Version None)
Quarter: 2010Q2

REPORT INFORMATION
  Report Type: 
  Country: None (occurrence: None)
  Receive Date: 20100408
  Receipt Date: 20100329
  Transmission Date: 20101027
  Serious: Yes (Other)
  Sender: FDA-Public Use
  Company Number: US-PFIZER INC-2010040788

PATIENT
  Sex: Male

DRUGS (1)
  1. NORVASC [Suspect]

REACTIONS (4)
  - BLOOD PRESSURE FLUCTUATION [None]
  - FACE OEDEMA [None]
  - GENERALISED OEDEMA [None]
  - RENAL DISORDER [None]
